FAERS Safety Report 10793468 (Version 1)
Quarter: 2015Q1

REPORT INFORMATION
  Report Type: Spontaneous
  Country: US (occurrence: US)
  Receive Date: 20150213
  Receipt Date: 20150213
  Transmission Date: 20150721
  Serious: No
  Sender: FDA-Public Use
  Company Number: US-PFIZER INC-2015056200

PATIENT
  Age: 88 Year
  Sex: Female
  Weight: 56.2 kg

DRUGS (1)
  1. REVATIO [Suspect]
     Active Substance: SILDENAFIL CITRATE
     Indication: PULMONARY HYPERTENSION
     Dosage: 20 MG, FOUR A DAY, TWO IN THE MORNING, ONE IN THE AFTERNOON AND ONE AT BED TIME

REACTIONS (1)
  - Weight decreased [Unknown]
